FAERS Safety Report 8214030-5 (Version None)
Quarter: 2012Q1

REPORT INFORMATION
  Report Type: 
  Country: None (occurrence: None)
  Receive Date: 20120316
  Receipt Date: 20120314
  Transmission Date: 20120608
  Serious: No
  Sender: FDA-Public Use
  Company Number: US-PFIZER INC-2012068382

PATIENT
  Age: 65 Year
  Sex: Female
  Weight: 122 kg

DRUGS (15)
  1. LETROZOLE [Concomitant]
     Dosage: 2.5 MG, DAILY
  2. LISINOPRIL [Concomitant]
     Dosage: 40 MG, DAILY
  3. OMEPRAZOLE [Concomitant]
     Dosage: 40 MG, DAILY
  4. CYMBALTA [Concomitant]
     Dosage: 120 MG, DAILY
  5. MELOXICAM [Concomitant]
     Dosage: 7.5 MG, DAILY
  6. CHANTIX [Suspect]
     Dosage: 0.5 MG, DAILY
     Route: 048
     Dates: start: 20120301, end: 20120301
  7. GLIPIZIDE [Concomitant]
     Dosage: 5 MG, 2X/DAY
  8. ADVAIR DISKUS 100/50 [Concomitant]
     Dosage: 250/50 UG, 2X/DAY
  9. HYDROCHLOROTHIAZIDE [Concomitant]
     Dosage: 25 MG, DAILY
  10. METFORMIN [Concomitant]
     Dosage: UNK, 3X/DAY
     Route: 048
  11. SPIRIVA [Concomitant]
     Dosage: UNK, DAILY
  12. CHANTIX [Suspect]
     Dosage: 1 MG, 2X/DAY
     Route: 048
     Dates: start: 20120301
  13. ACETAMINOPHEN AND HYDROCODONE BITARTRATE [Concomitant]
     Dosage: 10/325 MG, 4X/DAY
  14. DEXILANT [Concomitant]
     Dosage: 30 MG, DAILY
  15. CHANTIX [Suspect]
     Indication: SMOKING CESSATION THERAPY
     Dosage: 0.5 MG,DAILY
     Route: 048

REACTIONS (1)
  - NASOPHARYNGITIS [None]
